FAERS Safety Report 23821059 (Version 1)
Quarter: 2024Q2

REPORT INFORMATION
  Report Type: Spontaneous
  Country: ES (occurrence: ES)
  Receive Date: 20240506
  Receipt Date: 20240506
  Transmission Date: 20240715
  Serious: Yes (Other)
  Sender: FDA-Public Use
  Company Number: ES-ORGANON-O2405ESP000169

PATIENT
  Age: 58 Year
  Sex: Male

DRUGS (1)
  1. EZETIMIBE [Suspect]
     Active Substance: EZETIMIBE
     Dosage: UNK
     Route: 048

REACTIONS (1)
  - Drug-induced liver injury [Unknown]
